FAERS Safety Report 9551786 (Version 1)
Quarter: 2013Q3

REPORT INFORMATION
  Report Type: Spontaneous
  Country: US (occurrence: US)
  Receive Date: 20130925
  Receipt Date: 20130925
  Transmission Date: 20140515
  Serious: Yes (Other)
  Sender: FDA-Public Use
  Company Number: US-JNJFOC-20130910813

PATIENT
  Age: 64 Year
  Sex: Female

DRUGS (9)
  1. REMICADE [Suspect]
     Indication: RHEUMATOID ARTHRITIS
     Route: 042
     Dates: start: 20130827
  2. REMICADE [Suspect]
     Indication: RHEUMATOID ARTHRITIS
     Route: 042
     Dates: start: 201307
  3. REMICADE [Suspect]
     Indication: RHEUMATOID ARTHRITIS
     Route: 042
     Dates: start: 201306
  4. REMICADE [Suspect]
     Indication: RHEUMATOID ARTHRITIS
     Route: 042
     Dates: start: 2011, end: 201306
  5. METHOTREXATE [Concomitant]
     Route: 065
  6. VALIUM [Concomitant]
     Route: 065
  7. PERCOCET [Concomitant]
     Route: 065
  8. LYRICA [Concomitant]
     Route: 065
  9. DIOVAN [Concomitant]
     Route: 065

REACTIONS (6)
  - Loss of consciousness [Recovered/Resolved]
  - Hypotension [Unknown]
  - Infusion related reaction [Unknown]
  - Dizziness [Unknown]
  - Vomiting [Unknown]
  - Drug effect decreased [Recovered/Resolved]
